FAERS Safety Report 8831561 (Version 2)
Quarter: 2012Q4

REPORT INFORMATION
  Report Type: 
  Country: FR (occurrence: FR)
  Receive Date: 20121009
  Receipt Date: 20121024
  Transmission Date: 20130627
  Serious: Yes (Other)
  Sender: FDA-Public Use
  Company Number: FR-JNJFOC-20121005180

PATIENT
  Age: 60 Year
  Sex: Male

DRUGS (1)
  1. XARELTO [Suspect]
     Indication: VENOUS THROMBOSIS
     Route: 048
     Dates: start: 201209, end: 201209

REACTIONS (2)
  - Pulmonary embolism [Unknown]
  - Venous thrombosis [Unknown]
